FAERS Safety Report 10667482 (Version 1)
Quarter: 2014Q4

REPORT INFORMATION
  Report Type: Spontaneous
  Country: DE (occurrence: DE)
  Receive Date: 20141222
  Receipt Date: 20141222
  Transmission Date: 20150529
  Serious: Yes (Congenital Anomaly, Other)
  Sender: FDA-Public Use
  Company Number: DE-RANBAXY-2014RR-90465

PATIENT
  Age: 1 Day
  Sex: Male

DRUGS (5)
  1. ASPIRIN. [Concomitant]
     Active Substance: ASPIRIN
     Indication: CARDIOVASCULAR DISORDER
     Dosage: 100 MG, DAILY
     Route: 064
  2. FOLSAURE [Concomitant]
     Active Substance: FOLIC ACID
     Indication: PROPHYLAXIS OF NEURAL TUBE DEFECT
     Dosage: UNK
     Route: 064
  3. METHYLDOPA. [Concomitant]
     Active Substance: METHYLDOPA
     Indication: HYPERTENSION
     Dosage: UNK
     Route: 064
  4. VALSARTAN. [Suspect]
     Active Substance: VALSARTAN
     Indication: HYPERTENSION
     Dosage: 80 MG, DAILY
     Route: 064
     Dates: start: 20140115, end: 20140910
  5. SOTALOL. [Suspect]
     Active Substance: SOTALOL
     Indication: ARRHYTHMIA
     Dosage: 120 MG, DAILY (80-0-40)
     Route: 064
     Dates: start: 20140115, end: 20140910

REACTIONS (11)
  - High arched palate [Not Recovered/Not Resolved]
  - Foot deformity [Unknown]
  - Joint contracture [Unknown]
  - Premature baby [Recovering/Resolving]
  - Hypocalvaria [Unknown]
  - Cryptorchism [Unknown]
  - Hypertension [Unknown]
  - Pulmonary hypertension [Recovered/Resolved]
  - Atrial septal defect [Unknown]
  - Patent ductus arteriosus [Unknown]
  - Renal failure [Unknown]

NARRATIVE: CASE EVENT DATE: 20140919
